FAERS Safety Report 7439947-0 (Version None)
Quarter: 2011Q2

REPORT INFORMATION
  Report Type: 
  Country: None (occurrence: None)
  Receive Date: 20110427
  Receipt Date: 20091122
  Transmission Date: 20111010
  Serious: Yes (Death, Hospitalization, Other)
  Sender: FDA-Public Use
  Company Number: US-BAYER-200939862NA

PATIENT
  Age: 53 Year
  Sex: Female
  Weight: 102.4 kg

DRUGS (24)
  1. TRASYLOL [Suspect]
     Indication: AORTIC SURGERY
  2. NITROFURANTOIN [Concomitant]
     Dosage: 50 MG, QD
     Route: 048
  3. PREMPRO [Concomitant]
     Dosage: UNK UNK, QD
     Route: 048
  4. CEFOTETAN [Concomitant]
     Dosage: UNK
     Route: 042
     Dates: start: 20031001
  5. ACETYLSALICYLIC ACID SRT [Concomitant]
     Dosage: 81 MG, QD
     Route: 048
  6. NIASPAN [Concomitant]
     Dosage: 1 G, QD
     Route: 048
  7. ZOSYN [Concomitant]
     Route: 042
  8. ARICEPT [Concomitant]
     Dosage: 10 MG, QD
     Route: 048
     Dates: start: 20020101
  9. AUGMENTIN [Concomitant]
     Dosage: 875 MG, BID
     Route: 048
     Dates: start: 20031001
  10. GLUCOPHAGE [Concomitant]
     Dosage: UNK UNK, BID
     Route: 048
  11. AMARYL [Concomitant]
     Dosage: 1 MG, QD
     Route: 048
  12. KLONOPIN [Concomitant]
     Dosage: 0.5 MG, PRN
     Route: 048
  13. CIPRO [Concomitant]
     Dosage: 500 MG, UNK
     Dates: start: 20030701
  14. LISINOPRIL [Concomitant]
     Dosage: 20 MG, QD
     Route: 048
  15. CEFOTETAN [Concomitant]
     Dosage: 2 G, BID
     Route: 042
     Dates: start: 20031001
  16. ACIPHEX [Concomitant]
     Dosage: 20 MG, QD
     Route: 048
  17. BACLOFEN [Concomitant]
     Dosage: 20 MG, TID
     Route: 048
  18. GEMFIBROZIL [Concomitant]
     Dosage: 600 MG, BID
     Route: 048
  19. TRASYLOL [Suspect]
     Indication: AORTIC VALVE REPLACEMENT
     Route: 042
     Dates: start: 20040903
  20. PROZAC [Concomitant]
     Indication: DEPRESSION
     Dosage: 40 MG, QD
     Route: 048
  21. COPAXONE [Concomitant]
     Dosage: UNK UNK, QD
     Route: 058
  22. DIOVAN [Concomitant]
     Dosage: 80 MG, QD
     Route: 048
  23. NEURONTIN [Concomitant]
     Indication: NEUROPATHY PERIPHERAL
     Dosage: 300 MG, TID
     Route: 048
  24. TRICOR [Concomitant]
     Dosage: 160 MG, QD
     Route: 048

REACTIONS (13)
  - MULTI-ORGAN FAILURE [None]
  - DEATH [None]
  - EMOTIONAL DISTRESS [None]
  - STRESS [None]
  - RENAL IMPAIRMENT [None]
  - INJURY [None]
  - ANXIETY [None]
  - PAIN [None]
  - ANHEDONIA [None]
  - RENAL INJURY [None]
  - RENAL FAILURE [None]
  - UNEVALUABLE EVENT [None]
  - FEAR [None]
